FAERS Safety Report 25079998 (Version 1)
Quarter: 2025Q1

REPORT INFORMATION
  Report Type: Spontaneous
  Country: AE (occurrence: AE)
  Receive Date: 20250314
  Receipt Date: 20250314
  Transmission Date: 20250408
  Serious: Yes (Hospitalization, Other)
  Sender: VISTAPHARM
  Company Number: AE-VISTAPHARM-2025-AE-000004

PATIENT
  Age: 40 Year
  Sex: Male

DRUGS (4)
  1. ALOGLIPTIN [Concomitant]
     Active Substance: ALOGLIPTIN
  2. EMPAGLIFLOZIN [Concomitant]
     Active Substance: EMPAGLIFLOZIN
  3. METHYLCOBALAMIN [Concomitant]
     Active Substance: METHYLCOBALAMIN
  4. METFORMIN HYDROCHLORIDE [Suspect]
     Active Substance: METFORMIN HYDROCHLORIDE
     Indication: Diabetes mellitus

REACTIONS (1)
  - Haemolytic anaemia [Recovered/Resolved]
